FAERS Safety Report 18412046 (Version 1)
Quarter: 2020Q4

REPORT INFORMATION
  Report Type: Spontaneous
  Country: GR (occurrence: GR)
  Receive Date: 20201022
  Receipt Date: 20201022
  Transmission Date: 20210114
  Serious: Yes (Hospitalization)
  Sender: FDA-Public Use
  Company Number: GR-CELLTRION INC.-2020GR029423

PATIENT

DRUGS (1)
  1. INFLIXIMAB PFIZER (UNKNOWN) [Suspect]
     Active Substance: INFLIXIMAB
     Indication: COLITIS ULCERATIVE
     Dosage: 5 MG/KG 0.2.6 WEEKS

REACTIONS (2)
  - Cytomegalovirus infection [Recovered/Resolved]
  - Acute motor-sensory axonal neuropathy [Recovered/Resolved]
